FAERS Safety Report 7940611 (Version 3)
Quarter: 2020Q3

REPORT INFORMATION
  Report Type: Spontaneous
  Country: PL (occurrence: PL)
  Receive Date: 20110511
  Receipt Date: 20200722
  Transmission Date: 20201103
  Serious: Yes (Death, Other)
  Sender: FDA-Public Use
  Company Number: PHHY2011PL38153

PATIENT
  Age: 12 Month
  Sex: Female

DRUGS (2)
  1. VALPROIC ACID. [Suspect]
     Active Substance: VALPROIC ACID
     Indication: EPILEPSY
     Dosage: UNK UKN, UNK
     Route: 065
  2. ANTIEPILEPTICS [Concomitant]
     Active Substance: UNSPECIFIED INGREDIENT
     Indication: EPILEPSY
     Dosage: UNK UKN, UNK
     Route: 065

REACTIONS (27)
  - Gene mutation [Fatal]
  - Seizure [Fatal]
  - Hepatic failure [Fatal]
  - Hypertransaminasaemia [Unknown]
  - Jaundice [Fatal]
  - Toxicity to various agents [Fatal]
  - Ceruloplasmin decreased [Unknown]
  - Therapeutic response decreased [Unknown]
  - Cytomegalovirus infection [Fatal]
  - Somnolence [Fatal]
  - Drug resistance [Fatal]
  - Ascites [Fatal]
  - Liver disorder [Fatal]
  - Epilepsy [Fatal]
  - Coagulopathy [Fatal]
  - Psychomotor retardation [Fatal]
  - Hepatitis fulminant [Fatal]
  - Alpha 1 foetoprotein increased [Unknown]
  - Hypotonia [Fatal]
  - Electroencephalogram abnormal [Fatal]
  - Cerebral atrophy [Fatal]
  - Ketonuria [Unknown]
  - Alpers disease [Fatal]
  - Blood bilirubin increased [Fatal]
  - Anxiety [Fatal]
  - Hyporeflexia [Fatal]
  - Blood triglycerides increased [Unknown]
